FAERS Safety Report 14182000 (Version 1)
Quarter: 2017Q4

REPORT INFORMATION
  Report Type: Spontaneous
  Country: US (occurrence: US)
  Receive Date: 20171113
  Receipt Date: 20171113
  Transmission Date: 20180321
  Serious: No
  Sender: FDA-Public Use
  Company Number: PHEH2017US035637

PATIENT
  Age: 68 Year
  Sex: Female
  Weight: 57.14 kg

DRUGS (1)
  1. IMIQUIMOD. [Suspect]
     Active Substance: IMIQUIMOD
     Indication: ACTINIC KERATOSIS
     Dosage: 1 DF, QOD (M-W-F)
     Route: 061
     Dates: start: 20171027, end: 20171027

REACTIONS (4)
  - Eye swelling [Recovered/Resolved]
  - Visual impairment [Recovered/Resolved]
  - Rash [Recovering/Resolving]
  - Expired product administered [Unknown]

NARRATIVE: CASE EVENT DATE: 20171028
